FAERS Safety Report 9689947 (Version 1)
Quarter: 2013Q4

REPORT INFORMATION
  Report Type: Spontaneous
  Country: US (occurrence: US)
  Receive Date: 20131115
  Receipt Date: 20131115
  Transmission Date: 20140711
  Serious: No
  Sender: FDA-Public Use
  Company Number: US-PFIZER INC-2013323021

PATIENT
  Age: 59 Year
  Sex: Male

DRUGS (2)
  1. CADUET [Suspect]
     Dosage: [AMLODIPINE BESILATE10MG]/[AMLODIPINE BESILATE 20MG], DAILY
  2. CELEBREX [Suspect]
     Dosage: 200 MG, 2X/DAY

REACTIONS (1)
  - Blood cholesterol increased [Unknown]
